FAERS Safety Report 9693394 (Version 2)
Quarter: 2013Q4

REPORT INFORMATION
  Report Type: Spontaneous
  Country: US (occurrence: None)
  Receive Date: 20131114
  Receipt Date: 20131127
  Transmission Date: 20140711
  Serious: Yes (Hospitalization)
  Sender: FDA-Public Use
  Company Number: 2013-1749

PATIENT
  Age: 87 Year
  Sex: Male
  Weight: 68.4 kg

DRUGS (5)
  1. CARFILZOMIB [Suspect]
     Indication: PLASMA CELL MYELOMA
     Dosage: (36 MG/M2,DAY 1, 2, 8, 9, 15, 16) ,INTRAVENOUS
     Route: 042
     Dates: start: 20130409, end: 20131029
  2. REVLIMID (LENALIDOMIDE) (LENALIDOMIDE) [Concomitant]
  3. ASPIRIN (ACETYSALICYLIC ACID) (ACETYLSALICYLIC ACID) [Concomitant]
  4. LASIX (FUROSEMIDE) (FUROSEMIDE) [Concomitant]
  5. VALTREX (VALACICLOVIR HYDROCHLORIDE) (VALACICLOVIR HYDROCHLORIDE) [Concomitant]

REACTIONS (11)
  - Dyspnoea [None]
  - Fluid overload [None]
  - Oxygen saturation decreased [None]
  - Pleural effusion [None]
  - Atelectasis [None]
  - Pulmonary congestion [None]
  - Aortic stenosis [None]
  - Mitral valve incompetence [None]
  - Platelet count decreased [None]
  - Lymphocyte count decreased [None]
  - Anaemia [None]
